FAERS Safety Report 10088160 (Version 1)
Quarter: 2014Q2

REPORT INFORMATION
  Report Type: Spontaneous
  Country: US (occurrence: US)
  Receive Date: 20140421
  Receipt Date: 20140421
  Transmission Date: 20141212
  Serious: No
  Sender: FDA-Public Use
  Company Number: 2008BI032868

PATIENT
  Age: 31 Year
  Sex: Male

DRUGS (1)
  1. AVONEX [Suspect]
     Indication: MULTIPLE SCLEROSIS
     Route: 030
     Dates: start: 20051120, end: 2012

REACTIONS (7)
  - Feeling jittery [Not Recovered/Not Resolved]
  - Dry mouth [Not Recovered/Not Resolved]
  - Migraine [Not Recovered/Not Resolved]
  - Impaired work ability [Unknown]
  - Mobility decreased [Unknown]
  - Influenza like illness [Unknown]
  - Headache [Unknown]
